FAERS Safety Report 15256088 (Version 1)
Quarter: 2018Q3

REPORT INFORMATION
  Report Type: Spontaneous
  Country: FR (occurrence: FR)
  Receive Date: 20180808
  Receipt Date: 20180808
  Transmission Date: 20181010
  Serious: Yes (Other)
  Sender: FDA-Public Use
  Company Number: FR-PFIZER INC-2018317912

PATIENT
  Age: 24 Year
  Sex: Female

DRUGS (3)
  1. MORPHIN [Concomitant]
     Active Substance: MORPHINE
     Dosage: UNK
  2. NEURONTIN [Suspect]
     Active Substance: GABAPENTIN
     Dosage: 1800 MG, UNK
  3. NEURONTIN [Suspect]
     Active Substance: GABAPENTIN
     Dosage: 3000 MG, UNK

REACTIONS (5)
  - Withdrawal syndrome [Unknown]
  - Diarrhoea [Unknown]
  - Headache [Unknown]
  - Suicidal ideation [Unknown]
  - Abdominal pain upper [Unknown]
